FAERS Safety Report 5091918-8 (Version None)
Quarter: 2006Q3

REPORT INFORMATION
  Report Type: 
  Country: None (occurrence: None)
  Receive Date: 20060825
  Receipt Date: 20060809
  Transmission Date: 20061208
  Serious: Yes (Death)
  Sender: FDA-Public Use
  Company Number: JP200607000129

PATIENT
  Sex: Female
  Weight: 38.5 kg

DRUGS (8)
  1. OLANZAPINE [Suspect]
     Indication: SCHIZOPHRENIA, PARANOID TYPE
     Dosage: 5 MG, 3/D, ORAL
     Route: 048
     Dates: start: 20060609
  2. RISPERDAL     /SWE/(RISPERIDONE) [Concomitant]
  3. LORAZEPAM [Concomitant]
  4. AMOBAN (ZOPICLONE) [Concomitant]
  5. NITRAZEPAM [Concomitant]
  6. DORAL [Concomitant]
  7. CELMANIL (TIMIPERONE) [Concomitant]
  8. ARTANE [Concomitant]

REACTIONS (2)
  - COMPLETED SUICIDE [None]
  - INJURY ASPHYXIATION [None]
